FAERS Safety Report 5623281-5 (Version None)
Quarter: 2008Q1

REPORT INFORMATION
  Report Type: 
  Country: None (occurrence: None)
  Receive Date: 20080115
  Receipt Date: 20070226
  Transmission Date: 20080703
  Serious: Yes (Other)
  Sender: FDA-Public Use
  Company Number: 2007015555

PATIENT
  Age: 69 Year
  Sex: Female
  Weight: 65.3 kg

DRUGS (4)
  1. AROMASIN [Suspect]
     Indication: NEOPLASM MALIGNANT
     Dates: start: 20061215
  2. FOSAMAX [Concomitant]
  3. NUTRITIONAL SUPPLEMENT (GENERAL NUTRIENTS) [Concomitant]
  4. MULTI-VITAMINS [Concomitant]

REACTIONS (6)
  - ABDOMINAL PAIN [None]
  - DIARRHOEA [None]
  - FLATULENCE [None]
  - GASTROINTESTINAL INFECTION [None]
  - HEPATIC ENZYME INCREASED [None]
  - VOMITING [None]
